FAERS Safety Report 16282230 (Version 1)
Quarter: 2019Q2

REPORT INFORMATION
  Report Type: Spontaneous
  Country: US (occurrence: US)
  Receive Date: 20190507
  Receipt Date: 20190507
  Transmission Date: 20190711
  Serious: Yes (Other)
  Sender: FDA-Public Use
  Company Number: US-HIKMA PHARMACEUTICALS USA INC.-US-H14001-19-02910

PATIENT
  Age: 69 Year
  Sex: Male

DRUGS (1)
  1. MILRINONE [Suspect]
     Active Substance: MILRINONE
     Indication: PRODUCT USED FOR UNKNOWN INDICATION
     Route: 065

REACTIONS (2)
  - Eosinophilic cystitis [Recovered/Resolved]
  - Eosinophilia [Recovered/Resolved]
